FAERS Safety Report 6133267-2 (Version None)
Quarter: 2009Q1

REPORT INFORMATION
  Report Type: 
  Country: None (occurrence: None)
  Receive Date: 20090326
  Receipt Date: 20090313
  Transmission Date: 20090719
  Serious: Yes (Hospitalization, Disabling, Other)
  Sender: FDA-Public Use
  Company Number: US-PFIZER INC-2006113626

PATIENT
  Sex: Female
  Weight: 62.6 kg

DRUGS (13)
  1. DILANTIN-125 [Suspect]
     Indication: CONVULSION
     Dosage: UNK
     Dates: start: 19750101
  2. DILANTIN-125 [Suspect]
     Indication: EPILEPSY
  3. NEURONTIN [Suspect]
     Indication: CONVULSION
  4. NORVASC [Suspect]
     Indication: HYPERTENSION
  5. LYRICA [Suspect]
     Indication: CONVULSION
  6. LYRICA [Suspect]
     Indication: EPILEPSY
     Dosage: 300 MG, 2X/DAY
  7. NAPROSYN [Suspect]
  8. GABITRIL [Suspect]
  9. KEPPRA [Suspect]
     Dosage: UNK
  10. CLONAZEPAM [Concomitant]
  11. KLOR-CON [Concomitant]
  12. SYNTHROID [Concomitant]
  13. PHENOBARBITAL [Concomitant]
     Indication: EPILEPSY

REACTIONS (20)
  - BASEDOW'S DISEASE [None]
  - BLOOD DISORDER [None]
  - BLOOD PRESSURE ABNORMAL [None]
  - CATARACT [None]
  - COMA [None]
  - CONVULSION [None]
  - CORNEAL DISORDER [None]
  - EUPHORIC MOOD [None]
  - FEELING DRUNK [None]
  - HAEMORRHAGE [None]
  - LOSS OF CONSCIOUSNESS [None]
  - MEMORY IMPAIRMENT [None]
  - NERVE BLOCK [None]
  - SEPSIS [None]
  - SLEEP APNOEA SYNDROME [None]
  - STATUS EPILEPTICUS [None]
  - SWEAT GLAND DISORDER [None]
  - VISION BLURRED [None]
  - VISUAL ACUITY REDUCED [None]
  - WEIGHT INCREASED [None]
